FAERS Safety Report 4341820-1 (Version None)
Quarter: 2004Q2

REPORT INFORMATION
  Report Type: 
  Country: None (occurrence: None)
  Receive Date: 20040415
  Receipt Date: 20040329
  Transmission Date: 20050107
  Serious: Yes (Hospitalization)
  Sender: FDA-Public Use
  Company Number: US_0402100619

PATIENT
  Age: 8 Year
  Sex: Male

DRUGS (4)
  1. CECLOR [Suspect]
     Indication: TONSILLITIS
     Dosage: 750 MG/DAY
     Dates: start: 20031227, end: 20031229
  2. LOPERAMIDE HCL [Concomitant]
  3. POLARAMIN (DEXCHORPHENIRAMINE MALEATE) [Concomitant]
  4. MEQUITAZINE [Concomitant]

REACTIONS (12)
  - APHONIA [None]
  - CONVULSION [None]
  - DEPRESSED LEVEL OF CONSCIOUSNESS [None]
  - DYSARTHRIA [None]
  - DYSPNOEA [None]
  - ENCEPHALOPATHY [None]
  - HYPERREFLEXIA [None]
  - NUCLEAR MAGNETIC RESONANCE IMAGING BRAIN ABNORMAL [None]
  - PARALYSIS FLACCID [None]
  - TONGUE DISORDER [None]
  - UNRESPONSIVE TO PAIN STIMULI [None]
  - VIRAL INFECTION [None]
